FAERS Safety Report 6595600-7 (Version None)
Quarter: 2010Q1

REPORT INFORMATION
  Report Type: 
  Country: None (occurrence: None)
  Receive Date: 20100223
  Receipt Date: 20100211
  Transmission Date: 20100710
  Serious: Yes (Hospitalization)
  Sender: FDA-Public Use
  Company Number: FR-BRISTOL-MYERS SQUIBB COMPANY-14940803

PATIENT
  Age: 51 Year
  Sex: Male
  Weight: 61 kg

DRUGS (3)
  1. GLUCOPHAGE [Suspect]
     Indication: DIABETES MELLITUS
     Dosage: 30DEC09-08JAN10,9D 08JAN10;1700MG(850MG,2 IN 1 D) 11JAN-13JAN10:2000MG,2D RESTARTED ON 14JAN10
     Route: 048
     Dates: start: 20091230
  2. APROVEL TABS [Concomitant]
     Indication: HYPERTENSION
     Dosage: FOR YEARS INITIATED 3YRS AGO
     Route: 048
  3. AMAREL [Concomitant]
     Indication: DIABETES MELLITUS
     Dosage: TABS
     Route: 048
     Dates: start: 20100108

REACTIONS (3)
  - AGEUSIA [None]
  - DECREASED APPETITE [None]
  - FATIGUE [None]
